FAERS Safety Report 9786483 (Version 1)
Quarter: 2013Q4

REPORT INFORMATION
  Report Type: Spontaneous
  Country: FR (occurrence: FR)
  Receive Date: 20131227
  Receipt Date: 20131227
  Transmission Date: 20140711
  Serious: Yes (Hospitalization)
  Sender: FDA-Public Use
  Company Number: FR-PFIZER INC-2013364837

PATIENT
  Age: 53 Year
  Sex: Male

DRUGS (7)
  1. DOXYCYCLINE HYCLATE [Suspect]
     Indication: PROSTATITIS
     Dosage: UNK
     Dates: start: 20130625, end: 201307
  2. DOXYCYCLINE HYCLATE [Suspect]
     Indication: ACNE
  3. LEDERFOLINE [Suspect]
     Dosage: 5 MG, 1X/DAY
     Dates: start: 20130711, end: 20130723
  4. BACTRIM FORTE [Suspect]
     Indication: PNEUMOCYSTIS JIROVECII PNEUMONIA
     Dosage: 800 MG, 3X/DAY
     Route: 048
     Dates: start: 20130711, end: 20130722
  5. BACTRIM ADULTE [Suspect]
     Indication: PNEUMOCYSTIS JIROVECII PNEUMONIA
     Dosage: 400 MG, 3X/DAY
     Route: 048
     Dates: start: 20130711, end: 20130722
  6. STROMECTOL [Suspect]
     Indication: HELMINTHIC INFECTION
     Dosage: UNK
     Dates: start: 20130711, end: 20130711
  7. AERIUS [Suspect]
     Dosage: 5 MG, 1X/DAY
     Dates: start: 20130704, end: 20130714

REACTIONS (2)
  - Toxic epidermal necrolysis [Recovered/Resolved]
  - Hepatocellular injury [Recovered/Resolved]
